FAERS Safety Report 25567797 (Version 1)
Quarter: 2025Q3

REPORT INFORMATION
  Report Type: Spontaneous
  Country: US (occurrence: None)
  Receive Date: 20250716
  Receipt Date: 20250716
  Transmission Date: 20251021
  Serious: Yes (Hospitalization)
  Sender: FDA-CTU
  Company Number: None

PATIENT
  Age: 17 Year
  Sex: Male
  Weight: 85.5 kg

DRUGS (1)
  1. VOSILASARM [Suspect]
     Active Substance: VOSILASARM
     Indication: Muscle atrophy
     Dates: start: 20250609, end: 20250707

REACTIONS (9)
  - Product use in unapproved indication [None]
  - Product administered to patient of inappropriate age [None]
  - Emergency care [None]
  - Mental disorder [None]
  - Mood swings [None]
  - Hepatitis [None]
  - Fatigue [None]
  - Depressed mood [None]
  - Apathy [None]

NARRATIVE: CASE EVENT DATE: 20250707
